FAERS Safety Report 4639143-6 (Version None)
Quarter: 2005Q3

REPORT INFORMATION
  Report Type: 
  Country: None (occurrence: None)
  Receive Date: 20050418
  Receipt Date: 20050407
  Transmission Date: 20060218
  Serious: Yes (Hospitalization)
  Sender: FDA-Public Use
  Company Number: 2005-04-0219

PATIENT
  Age: 53 Year
  Sex: Female

DRUGS (6)
  1. BETAMETHASONE [Suspect]
     Indication: BRONCHITIS
     Dates: start: 20050308, end: 20050309
  2. TOLBUTAMIDE [Suspect]
     Dates: start: 20050308, end: 20050309
  3. CARBOCISTEINE [Suspect]
     Indication: BRONCHITIS
     Dosage: ORAL
     Route: 048
     Dates: start: 20050308, end: 20050309
  4. QVAR 40 [Suspect]
     Indication: BRONCHITIS
     Dosage: INHALATION
     Route: 055
     Dates: start: 20050308, end: 20050309
  5. DERINOX [Suspect]
     Indication: BRONCHITIS
     Dates: start: 20050308, end: 20050309
  6. PYOSTACINE [Suspect]
     Indication: BRONCHITIS
     Dosage: 1500MG TOTAL ORAL
     Route: 048
     Dates: start: 20050308, end: 20050309

REACTIONS (2)
  - PITYRIASIS RUBRA PILARIS [None]
  - PRURITUS [None]
